FAERS Safety Report 5670227-X (Version None)
Quarter: 2008Q1

REPORT INFORMATION
  Report Type: 
  Country: None (occurrence: None)
  Receive Date: 20080314
  Receipt Date: 20080314
  Transmission Date: 20080703
  Serious: Yes (Death, Life-Threatening, Hospitalization)
  Sender: FDA-Public Use
  Company Number: None

PATIENT
  Age: 70 Year
  Sex: Female
  Weight: 61.9 kg

DRUGS (7)
  1. WARFARIN SODIUM [Suspect]
     Indication: ATRIAL FIBRILLATION
     Dosage: 5MG PO DAILY PTA - 9/28/07
     Route: 048
     Dates: end: 20070928
  2. DIGOXIN [Concomitant]
  3. DOCUSATE [Concomitant]
  4. PRAVASTATIN [Concomitant]
  5. DIOVAN [Concomitant]
  6. PAXIL [Concomitant]
  7. ISRADIPINE [Concomitant]

REACTIONS (1)
  - BRAIN STEM HAEMORRHAGE [None]
